FAERS Safety Report 15223312 (Version 2)
Quarter: 2018Q3

REPORT INFORMATION
  Report Type: Report from Study
  Country: US (occurrence: US)
  Receive Date: 20180731
  Receipt Date: 20180920
  Transmission Date: 20181010
  Serious: Yes (Other)
  Sender: FDA-Public Use
  Company Number: US-ACTELION-A-US2016-145649

PATIENT
  Age: 69 Year
  Sex: Female
  Weight: 55.33 kg

DRUGS (4)
  1. OPSUMIT [Suspect]
     Active Substance: MACITENTAN
     Indication: PULMONARY ARTERIAL HYPERTENSION
     Dosage: 10 MG, QD
     Route: 048
     Dates: start: 20160930
  2. ADEMPAS [Concomitant]
     Active Substance: RIOCIGUAT
  3. AMLODIPINE [Concomitant]
     Active Substance: AMLODIPINE BESYLATE
  4. COUMADIN [Concomitant]
     Active Substance: WARFARIN SODIUM

REACTIONS (14)
  - Blood pressure abnormal [Unknown]
  - Blood pressure diastolic decreased [Unknown]
  - Nasopharyngitis [Unknown]
  - Dyspnoea [Unknown]
  - Raynaud^s phenomenon [Unknown]
  - Cough [Unknown]
  - Unevaluable event [Unknown]
  - Dizziness [Unknown]
  - Paraesthesia [Unknown]
  - Hypotension [Unknown]
  - Feeling abnormal [Unknown]
  - Pain [Unknown]
  - Sinus operation [Unknown]
  - Systemic lupus erythematosus [Unknown]
